FAERS Safety Report 10265745 (Version 2)
Quarter: 2014Q3

REPORT INFORMATION
  Report Type: Spontaneous
  Country: US (occurrence: US)
  Receive Date: 20140627
  Receipt Date: 20140909
  Transmission Date: 20150326
  Serious: Yes (Death, Hospitalization)
  Sender: FDA-Public Use
  Company Number: US-TEVA-491107USA

PATIENT
  Age: 47 Year
  Sex: Female

DRUGS (2)
  1. TREANDA [Suspect]
     Active Substance: BENDAMUSTINE HYDROCHLORIDE
     Indication: NEOPLASM MALIGNANT
     Dates: end: 201402
  2. TREANDA [Suspect]
     Active Substance: BENDAMUSTINE HYDROCHLORIDE

REACTIONS (1)
  - Infection [Fatal]

NARRATIVE: CASE EVENT DATE: 20140517
